FAERS Safety Report 16394512 (Version 1)
Quarter: 2019Q3

REPORT INFORMATION
  Report Type: Spontaneous
  Country: US (occurrence: US)
  Receive Date: 20190604
  Receipt Date: 20190604
  Transmission Date: 20191004
  Serious: No
  Sender: FDA-Public Use
  Company Number: None

PATIENT
  Age: 50 Year
  Sex: Male
  Weight: 75.6 kg

DRUGS (3)
  1. ROPINEROLE 4MG TABLETS. GENERIC EQUIVALENT FOR REQUIP 4MG [Suspect]
     Active Substance: ROPINIROLE HYDROCHLORIDE
     Indication: RESTLESS LEGS SYNDROME
     Dosage: ?          QUANTITY:1 TABLET(S);?
     Route: 048
  2. EPAKOTE [Concomitant]
  3. REMERON [Concomitant]
     Active Substance: MIRTAZAPINE

REACTIONS (2)
  - Product quality issue [None]
  - Therapeutic product effect incomplete [None]

NARRATIVE: CASE EVENT DATE: 20190107
